FAERS Safety Report 11971636 (Version 1)
Quarter: 2016Q1

REPORT INFORMATION
  Report Type: Spontaneous
  Country: US (occurrence: US)
  Receive Date: 20160128
  Receipt Date: 20160128
  Transmission Date: 20160526
  Serious: Yes (Other)
  Sender: FDA-Public Use
  Company Number: US-LPDUSPRD-20160058

PATIENT
  Age: 39 Year
  Sex: Male

DRUGS (8)
  1. FOSPHENYTOIN SODIUM INJECTION, USP (025-21) [Suspect]
     Active Substance: FOSPHENYTOIN SODIUM
     Dosage: 300 MG DAILY
     Route: 042
  2. OXYCODONE HYDROCHLORIDE. [Suspect]
     Active Substance: OXYCODONE HYDROCHLORIDE
     Dosage: 15 MG EVERY 4 HRS AS NEEDED
     Route: 065
  3. PALIFERMIN [Concomitant]
     Active Substance: PALIFERMIN
     Dosage: DOSE NOT PROVIDED
     Route: 065
  4. ETOPOSIDE. [Concomitant]
     Active Substance: ETOPOSIDE
     Dosage: DOSE NOT PROVIDED
     Route: 065
  5. TACROLIMUS. [Concomitant]
     Active Substance: TACROLIMUS
     Dosage: DOSE NOT PROVIDED
     Route: 065
  6. SIROLIMUS. [Concomitant]
     Active Substance: SIROLIMUS
     Dosage: DOSE NOT PROVIDED
     Route: 065
  7. OXYCODONE ER [Suspect]
     Active Substance: OXYCODONE
     Dosage: 60 MG EVERY 8 HOURS
     Route: 065
  8. CYCLOSPHAMIDE [Concomitant]
     Active Substance: CYCLOPHOSPHAMIDE
     Dosage: DOSE NOT PROVIDED
     Route: 065

REACTIONS (2)
  - Drug interaction [Recovered/Resolved]
  - Pain [Unknown]
